FAERS Safety Report 7220960-3 (Version None)
Quarter: 2011Q1

REPORT INFORMATION
  Report Type: 
  Country: None (occurrence: None)
  Receive Date: 20110103
  Receipt Date: 20101223
  Transmission Date: 20110831
  Serious: Yes (Hospitalization)
  Sender: FDA-Public Use
  Company Number: 2010SP066032

PATIENT
  Age: 64 Year
  Sex: Female

DRUGS (8)
  1. TEMODAL [Suspect]
     Indication: GLIOBLASTOMA MULTIFORME
     Dosage: (200 MG) (200 MG)
     Dates: start: 20101217
  2. TEMODAL [Suspect]
     Indication: GLIOBLASTOMA MULTIFORME
     Dosage: (200 MG) (200 MG)
     Dates: start: 20101220
  3. CLARITIN [Suspect]
     Indication: PRODUCT USED FOR UNKNOWN INDICATION
  4. DILANTIN [Concomitant]
  5. ZOFRAN [Concomitant]
  6. SOMAC [Concomitant]
  7. DEXAMETHASONE [Concomitant]
  8. PANADOL [Concomitant]

REACTIONS (2)
  - EYE SWELLING [None]
  - CONVULSION [None]
